FAERS Safety Report 6190946-9 (Version None)
Quarter: 2009Q2

REPORT INFORMATION
  Report Type: 
  Country: None (occurrence: None)
  Receive Date: 20090514
  Receipt Date: 20090505
  Transmission Date: 20091009
  Serious: Yes (Hospitalization, Other)
  Sender: FDA-Public Use
  Company Number: US-ABBOTT-09P-163-0571991-00

PATIENT
  Sex: Female
  Weight: 50.848 kg

DRUGS (15)
  1. DEPAKOTE ER [Suspect]
     Indication: NEURALGIA
     Route: 048
     Dates: start: 20081001, end: 20081001
  2. DEPAKOTE ER [Suspect]
     Route: 048
     Dates: start: 20081001, end: 20081001
  3. DEPAKOTE ER [Suspect]
     Route: 048
     Dates: start: 20081001, end: 20081001
  4. DEPAKOTE ER [Suspect]
     Route: 048
     Dates: start: 20081001, end: 20081001
  5. DEPAKOTE ER [Suspect]
     Route: 048
     Dates: start: 20090401, end: 20090401
  6. DEPAKOTE ER [Suspect]
     Route: 048
     Dates: start: 20090401, end: 20090401
  7. DEPAKOTE ER [Suspect]
     Route: 048
     Dates: start: 20090401
  8. DEPAKOTE ER [Suspect]
     Route: 048
     Dates: start: 20090401
  9. DILAUDID [Suspect]
     Indication: NEURALGIA
     Route: 048
     Dates: start: 20090201
  10. OXYCODONE [Suspect]
     Indication: NEURALGIA
     Dates: end: 20081001
  11. KLONOPIN [Concomitant]
     Indication: NEURALGIA
  12. VITAMIN D [Concomitant]
     Indication: VITAMIN D DEFICIENCY
     Dosage: 50,000 IU
  13. B12-VITAMIN [Concomitant]
     Indication: VITAMIN B12 DEFICIENCY
  14. ADVIL [Concomitant]
     Indication: PAIN
  15. PRUDOXIN 180 GM / VALPROIC ACID 10% CREAM [Concomitant]
     Indication: PAIN

REACTIONS (14)
  - BLADDER DISORDER [None]
  - CONSTIPATION [None]
  - DRUG ADMINISTRATION ERROR [None]
  - DYSPNOEA [None]
  - INCREASED APPETITE [None]
  - NAUSEA [None]
  - NEURALGIA [None]
  - PRURITUS [None]
  - SENSORY DISTURBANCE [None]
  - SEROMA [None]
  - SOMNOLENCE [None]
  - URINARY RETENTION [None]
  - VOMITING [None]
  - WEIGHT INCREASED [None]
